FAERS Safety Report 8986476 (Version 2)
Quarter: 2013Q2

REPORT INFORMATION
  Report Type: Spontaneous
  Country: US (occurrence: US)
  Receive Date: 20121227
  Receipt Date: 20130404
  Transmission Date: 20140414
  Serious: No
  Sender: FDA-Public Use
  Company Number: US-AMGEN-USASP2012082441

PATIENT
  Age: 67 Year
  Sex: Female

DRUGS (8)
  1. PROLIA [Suspect]
     Indication: PRODUCT USED FOR UNKNOWN INDICATION
     Dosage: UNK
     Dates: start: 201109
  2. CALCIUM [Suspect]
  3. TUMS                               /00193601/ [Concomitant]
  4. CARDIZEM                           /00489701/ [Concomitant]
  5. PREVACID [Concomitant]
  6. ATIVAN [Concomitant]
  7. PROPAFENONE [Concomitant]
  8. VITAMIN D /00107901/ [Concomitant]

REACTIONS (13)
  - Chest pain [Unknown]
  - Spinal pain [Unknown]
  - Bone pain [Unknown]
  - Arthralgia [Unknown]
  - Hyperhidrosis [Unknown]
  - Flushing [Unknown]
  - Bone disorder [Unknown]
  - Spinal disorder [Unknown]
  - Myalgia [Unknown]
  - Diarrhoea [Unknown]
  - Flatulence [Unknown]
  - Malaise [Unknown]
  - Pollakiuria [Unknown]
